FAERS Safety Report 4371730-5 (Version None)
Quarter: 2004Q2

REPORT INFORMATION
  Report Type: 
  Country: None (occurrence: None)
  Receive Date: 20040602
  Receipt Date: 20040602
  Transmission Date: 20050107
  Serious: Yes (Other)
  Sender: FDA-Public Use
  Company Number: None

PATIENT
  Age: 70 Year
  Sex: Male
  Weight: 71.5 kg

DRUGS (2)
  1. ANCEF [Suspect]
  2. CEPHALOSPORINS [Suspect]

REACTIONS (1)
  - HYPOTENSION [None]
